FAERS Safety Report 14070069 (Version 2)
Quarter: 2017Q4

REPORT INFORMATION
  Report Type: Spontaneous
  Country: BE (occurrence: BE)
  Receive Date: 20171011
  Receipt Date: 20171123
  Transmission Date: 20180321
  Serious: Yes (Other)
  Sender: FDA-Public Use
  Company Number: BE-CIPLA LTD.-2017BE17882

PATIENT

DRUGS (6)
  1. FOLINIC ACID [Concomitant]
     Active Substance: LEUCOVORIN
     Indication: ADENOCARCINOMA OF COLON
  2. OXALIPLATIN. [Suspect]
     Active Substance: OXALIPLATIN
     Indication: COLORECTAL CANCER METASTATIC
     Dosage: UNK, (12 CYCLES), PRE AND POST-OPERATIVE CUMULATIVE DOSE (FOLFOX CHEMOTHERAPY) OF 833MG
     Route: 065
  3. OXALIPLATIN. [Suspect]
     Active Substance: OXALIPLATIN
     Indication: ADENOCARCINOMA OF COLON
  4. FOLINIC ACID [Concomitant]
     Active Substance: LEUCOVORIN
     Indication: COLORECTAL CANCER METASTATIC
     Dosage: UNK, (12 CYCLES)
     Route: 065
  5. FLUOROURACIL. [Concomitant]
     Active Substance: FLUOROURACIL
     Indication: COLORECTAL CANCER METASTATIC
     Dosage: UNK, (12 CYCLES), PRE AND POST-OPERATIVE CUMULATIVE DOSE (FOLFOX CHEMOTHERAPY) OF 864 MG
     Route: 065
  6. FLUOROURACIL. [Concomitant]
     Active Substance: FLUOROURACIL
     Indication: ADENOCARCINOMA OF COLON

REACTIONS (8)
  - Polyneuropathy [Recovering/Resolving]
  - Weight decreased [Unknown]
  - Decreased appetite [Unknown]
  - Neurotoxicity [Recovering/Resolving]
  - Venoocclusive liver disease [Recovering/Resolving]
  - Autonomic neuropathy [Recovering/Resolving]
  - Hepatotoxicity [Recovering/Resolving]
  - Ascites [Recovering/Resolving]
